FAERS Safety Report 5454704-2 (Version None)
Quarter: 2007Q3

REPORT INFORMATION
  Report Type: 
  Country: None (occurrence: None)
  Receive Date: 20070917
  Receipt Date: 20060925
  Transmission Date: 20080115
  Serious: No
  Sender: FDA-Public Use
  Company Number: US-ASTRAZENECA-2006UW18655

PATIENT
  Age: 51 Year
  Sex: Male
  Weight: 68 kg

DRUGS (6)
  1. SEROQUEL [Suspect]
     Indication: BIPOLAR DISORDER
     Route: 048
  2. LIPITOR [Concomitant]
  3. NIASPAN [Concomitant]
  4. PLAVIX [Concomitant]
  5. ATENOLOL [Concomitant]
  6. GEODON [Concomitant]

REACTIONS (2)
  - BLOOD GLUCOSE INCREASED [None]
  - RESTLESS LEGS SYNDROME [None]
